FAERS Safety Report 8966883 (Version 1)
Quarter: 2012Q4

REPORT INFORMATION
  Report Type: 
  Country: PE (occurrence: PE)
  Receive Date: 20121214
  Receipt Date: 20121214
  Transmission Date: 20130627
  Serious: Yes (Other)
  Sender: FDA-Public Use
  Company Number: PE-PFIZER INC-2012311696

PATIENT
  Age: 76 Year
  Sex: Male

DRUGS (1)
  1. XALATAN [Suspect]
     Dosage: UNK
     Route: 047

REACTIONS (2)
  - Accident [Recovering/Resolving]
  - Joint injury [Recovering/Resolving]
